FAERS Safety Report 9142614 (Version 2)
Quarter: 2013Q1

REPORT INFORMATION
  Report Type: Spontaneous
  Country: GB (occurrence: GB)
  Receive Date: 20130306
  Receipt Date: 20130321
  Transmission Date: 20140127
  Serious: Yes (Other)
  Sender: FDA-Public Use
  Company Number: GB-JNJFOC-20130212447

PATIENT
  Sex: Male

DRUGS (3)
  1. RISPERDAL CONSTA [Suspect]
     Indication: SCHIZOPHRENIA
     Route: 030
     Dates: start: 2009, end: 201211
  2. METHADONE [Concomitant]
     Indication: DRUG DEPENDENCE
     Route: 065
  3. DIAZEPAM [Concomitant]
     Indication: AGITATION
     Route: 065

REACTIONS (1)
  - Gynaecomastia [Recovered/Resolved]
